FAERS Safety Report 6753793-2 (Version None)
Quarter: 2010Q2

REPORT INFORMATION
  Report Type: 
  Country: None (occurrence: None)
  Receive Date: 20100601
  Receipt Date: 20100525
  Transmission Date: 20101027
  Serious: Yes (Death, Hospitalization)
  Sender: FDA-Public Use
  Company Number: 2010SP029308

PATIENT
  Age: 79 Year
  Sex: Female

DRUGS (4)
  1. MIRTAZAPINE [Suspect]
     Indication: DEMENTIA ALZHEIMER'S TYPE
     Dosage: 15  MG;QD;PO; 30 MG;QD;PO
     Route: 048
     Dates: start: 20080101, end: 20090201
  2. RISPERDAL [Concomitant]
  3. MEMANTINE HCL [Concomitant]
  4. ARICEPT [Concomitant]

REACTIONS (2)
  - HAEMORRHAGE INTRACRANIAL [None]
  - IDIOPATHIC THROMBOCYTOPENIC PURPURA [None]
